FAERS Safety Report 4316210-8 (Version None)
Quarter: 2004Q1

REPORT INFORMATION
  Report Type: 
  Country: None (occurrence: None)
  Receive Date: 20040312
  Receipt Date: 20040303
  Transmission Date: 20041129
  Serious: Yes (Hospitalization)
  Sender: FDA-Public Use
  Company Number: FR-GLAXOSMITHKLINE-B0326245A

PATIENT
  Age: 7 Year
  Sex: Male

DRUGS (2)
  1. SEREVENT [Suspect]
     Indication: ASTHMA EXERCISE INDUCED
     Dosage: 50MCG TWICE PER DAY
     Route: 055
     Dates: start: 20040209, end: 20040301
  2. SPIR [Concomitant]
     Indication: ASTHMA EXERCISE INDUCED
     Dosage: 250MCG TWICE PER DAY
     Route: 055

REACTIONS (5)
  - CONVULSION [None]
  - GAZE PALSY [None]
  - PARASITIC INFECTION INTESTINAL [None]
  - STARING [None]
  - TONGUE BITING [None]
